FAERS Safety Report 16403925 (Version 2)
Quarter: 2019Q2

REPORT INFORMATION
  Report Type: Report from Study
  Country: None (occurrence: PT)
  Receive Date: 20190607
  Receipt Date: 20190621
  Transmission Date: 20190711
  Serious: Yes (Other)
  Sender: FDA-Public Use
  Company Number: PT-ABBVIE-19K-130-2811276-00

PATIENT
  Age: 69 Year
  Sex: Female

DRUGS (3)
  1. FOLICIL [Concomitant]
     Active Substance: FOLIC ACID
     Indication: CROHN^S DISEASE
     Route: 048
  2. HUMIRA [Suspect]
     Active Substance: ADALIMUMAB
     Indication: CROHN^S DISEASE
     Route: 058
     Dates: start: 20190422, end: 20190520
  3. HUMIRA [Suspect]
     Active Substance: ADALIMUMAB
     Route: 058
     Dates: start: 20190614

REACTIONS (6)
  - Tremor [Recovered/Resolved]
  - Psychiatric symptom [Recovering/Resolving]
  - Erysipelas [Recovering/Resolving]
  - Feeling abnormal [Recovered/Resolved]
  - Anxiety [Recovering/Resolving]
  - Vomiting [Recovered/Resolved]

NARRATIVE: CASE EVENT DATE: 20190601
